FAERS Safety Report 17507928 (Version 1)
Quarter: 2020Q1

REPORT INFORMATION
  Report Type: Report from Study
  Country: None (occurrence: BR)
  Receive Date: 20200305
  Receipt Date: 20200305
  Transmission Date: 20200409
  Serious: Yes (Other)
  Sender: FDA-Public Use
  Company Number: BR-ABBVIE-20K-020-3305288-00

PATIENT
  Sex: Female

DRUGS (2)
  1. HUMIRA [Suspect]
     Active Substance: ADALIMUMAB
     Indication: CROHN^S DISEASE
     Dosage: UNSPECIFIED DOSE?UNSPECIFIED FREQUENCY
     Route: 058
     Dates: start: 20140601
  2. HUMIRA [Suspect]
     Active Substance: ADALIMUMAB
     Route: 058
     Dates: start: 2019

REACTIONS (5)
  - Large intestinal stenosis [Unknown]
  - Therapeutic product effect decreased [Unknown]
  - Post procedural inflammation [Unknown]
  - Anorectal disorder [Unknown]
  - Investigation abnormal [Unknown]
